FAERS Safety Report 5990346-8 (Version None)
Quarter: 2008Q4

REPORT INFORMATION
  Report Type: 
  Country: None (occurrence: None)
  Receive Date: 20081211
  Receipt Date: 20081110
  Transmission Date: 20090506
  Serious: No
  Sender: FDA-Public Use
  Company Number: US-BAYER-200838299NA

PATIENT
  Age: 47 Year
  Sex: Female

DRUGS (1)
  1. CLIMARA [Suspect]
     Indication: HYSTERECTOMY
     Dosage: AS USED: 0.1 MG
     Route: 062

REACTIONS (3)
  - APPLICATION SITE IRRITATION [None]
  - APPLICATION SITE RASH [None]
  - RASH [None]
